FAERS Safety Report 18619094 (Version 1)
Quarter: 2020Q4

REPORT INFORMATION
  Report Type: Spontaneous
  Country: GB (occurrence: GB)
  Receive Date: 20201215
  Receipt Date: 20201215
  Transmission Date: 20210114
  Serious: Yes (Other)
  Sender: FDA-Public Use
  Company Number: GB-TEVA-2020-GB-1857222

PATIENT
  Age: 19 Year
  Sex: Female
  Weight: 64 kg

DRUGS (3)
  1. NITROFURANTOIN. [Suspect]
     Active Substance: NITROFURANTOIN
     Indication: URINARY TRACT INFECTION
     Dosage: UNIT DOSE :  200 MG
     Dates: start: 20201107
  2. PIVMECILLINAM [Concomitant]
     Active Substance: AMDINOCILLIN PIVOXIL
     Dosage: TAKE 2 TABLETS FIRST DOSE THEN THREE TIMES DAILY
     Dates: start: 20201116
  3. RIGEVIDON [Concomitant]
     Dosage: FOR 21 DAYS; SUBSEQUENT COURSE...
     Dates: start: 20190801

REACTIONS (2)
  - Rash macular [Recovering/Resolving]
  - Drug hypersensitivity [Unknown]

NARRATIVE: CASE EVENT DATE: 20201116
